FAERS Safety Report 23438253 (Version 1)
Quarter: 2024Q1

REPORT INFORMATION
  Report Type: Spontaneous
  Country: US (occurrence: None)
  Receive Date: 20240123
  Receipt Date: 20240123
  Transmission Date: 20240410
  Serious: Yes (unspecified)
  Sender: FDA-Public Use
  Company Number: None

PATIENT
  Age: 76 Year
  Sex: Female
  Weight: 57.61 kg

DRUGS (1)
  1. EVENITY [Suspect]
     Active Substance: ROMOSOZUMAB-AQQG
     Indication: Osteoporosis
     Dosage: OTHER QUANTITY : 2 INJECTIONS MNTHL;?FREQUENCY : MONTHLY;?
     Dates: start: 202307, end: 202312

REACTIONS (4)
  - Alopecia [None]
  - Rash [None]
  - Hyperaesthesia [None]
  - Pruritus [None]
